FAERS Safety Report 9540740 (Version 2)
Quarter: 2013Q4

REPORT INFORMATION
  Report Type: Spontaneous
  Country: US (occurrence: US)
  Receive Date: 20130920
  Receipt Date: 20131011
  Transmission Date: 20140711
  Serious: No
  Sender: FDA-Public Use
  Company Number: US-PFIZER INC-2013270533

PATIENT
  Age: 27 Year
  Sex: Female

DRUGS (1)
  1. LYRICA [Suspect]
     Dosage: UNK, EVERY EIGHT HOURS
     Route: 048
     Dates: start: 20130423

REACTIONS (2)
  - Poor quality drug administered [Unknown]
  - Product quality issue [Unknown]
